FAERS Safety Report 8134227-2 (Version None)
Quarter: 2012Q1

REPORT INFORMATION
  Report Type: 
  Country: None (occurrence: None)
  Receive Date: 20120209
  Receipt Date: 20120125
  Transmission Date: 20120608
  Serious: Yes (Hospitalization)
  Sender: FDA-Public Use
  Company Number: NSR_00481_2012

PATIENT
  Age: 48 Year
  Sex: Male

DRUGS (6)
  1. BENZODIAZEPINE RELATED DRUGS [Suspect]
     Indication: PRODUCT USED FOR UNKNOWN INDICATION
     Dosage: (DF)
  2. NEBIVOLOL [Suspect]
     Indication: PRODUCT USED FOR UNKNOWN INDICATION
     Dosage: (DF [EMPTY BOTTLE OF NEBIVOLOL (300 MG PRESCRIBED)])
  3. BACLOFEN [Suspect]
     Indication: PRODUCT USED FOR UNKNOWN INDICATION
     Dosage: (DF [HALF EMPTY BOTTLE OF BACLOFEN (2,700 MG PRESCRIBED)])
  4. DIAZEPAM [Suspect]
     Indication: PRODUCT USED FOR UNKNOWN INDICATION
     Dosage: (DF [HALF EMPTY BOTTLE OF DIAZEPAM (75 MG PRESCRIBED)])
  5. ETHANOL [Suspect]
     Indication: PRODUCT USED FOR UNKNOWN INDICATION
     Dosage: (DF)
  6. COCAINE [Suspect]
     Indication: PRODUCT USED FOR UNKNOWN INDICATION
     Dosage: (DF)

REACTIONS (14)
  - PUPILLARY REFLEX IMPAIRED [None]
  - SUICIDE ATTEMPT [None]
  - HYPOTENSION [None]
  - BLOOD PRESSURE SYSTOLIC DECREASED [None]
  - MULTIPLE DRUG OVERDOSE INTENTIONAL [None]
  - PULSE ABSENT [None]
  - COMA SCALE ABNORMAL [None]
  - UNRESPONSIVE TO STIMULI [None]
  - DRUG ADMINISTRATION ERROR [None]
  - HYPOKALAEMIA [None]
  - HYPOPNOEA [None]
  - ELECTROCARDIOGRAM QT PROLONGED [None]
  - CARDIAC ARREST [None]
  - MEAN ARTERIAL PRESSURE DECREASED [None]
